FAERS Safety Report 6673674-2 (Version None)
Quarter: 2010Q1

REPORT INFORMATION
  Report Type: 
  Country: None (occurrence: None)
  Receive Date: 20100329
  Receipt Date: 20090828
  Transmission Date: 20100710
  Serious: Yes (Hospitalization, Other)
  Sender: FDA-Public Use
  Company Number: 2009227662

PATIENT
  Age: 28 Year
  Sex: Female

DRUGS (3)
  1. GEODON [Suspect]
     Indication: PSYCHOTIC DISORDER
     Dosage: 20 MG, 2X/DAY, ORAL
     Route: 048
     Dates: start: 20090516, end: 20090522
  2. DEPO-PROVERA [Concomitant]
  3. ST. JOHN'S WORT (HYPERICUM PERFORATUM) [Concomitant]

REACTIONS (5)
  - ELECTROCARDIOGRAM QT PROLONGED [None]
  - GRAND MAL CONVULSION [None]
  - SEDATION [None]
  - TORSADE DE POINTES [None]
  - URINARY TRACT INFECTION [None]
